FAERS Safety Report 4896573-5 (Version None)
Quarter: 2005Q4

REPORT INFORMATION
  Report Type: 
  Country: None (occurrence: None)
  Receive Date: 20051223
  Receipt Date: 20051103
  Transmission Date: 20060501
  Serious: No
  Sender: FDA-Public Use
  Company Number: 05P-163-0316386-00

PATIENT
  Age: 37 Year
  Sex: Male
  Weight: 104.5 kg

DRUGS (10)
  1. HUMIRA [Suspect]
     Indication: CROHN'S DISEASE
     Dosage: 40 MG, 1 IN 2 WK, SUBCUTANEOUS
     Route: 058
     Dates: start: 20050301
  2. ESOMEPRAZOLE [Concomitant]
  3. CYANOCOBALAMIN [Concomitant]
  4. OXYCODONE HCL [Concomitant]
  5. BENICAR [Concomitant]
  6. PHENERGAN [Concomitant]
  7. CLONIDINE [Concomitant]
  8. ENTOCORT EC [Concomitant]
  9. COUMADIN [Concomitant]
  10. CYNBALTA [Concomitant]

REACTIONS (1)
  - INJECTION SITE IRRITATION [None]
